FAERS Safety Report 19007958 (Version 2)
Quarter: 2021Q2

REPORT INFORMATION
  Report Type: Spontaneous
  Country: US (occurrence: US)
  Receive Date: 20210315
  Receipt Date: 20210408
  Transmission Date: 20210717
  Serious: No
  Sender: FDA-Public Use
  Company Number: US-BAYER-2021-103902

PATIENT
  Age: 9 Decade
  Sex: Male

DRUGS (2)
  1. MIRALAX [Suspect]
     Active Substance: POLYETHYLENE GLYCOL 3350
     Indication: CONSTIPATION
     Dosage: UNK
     Route: 065
     Dates: start: 202103, end: 202103
  2. PEPTO?BISMOL [Concomitant]
     Active Substance: BISMUTH SUBSALICYLATE
     Dosage: UNK

REACTIONS (4)
  - Abdominal pain upper [Recovered/Resolved]
  - Abdominal discomfort [Recovered/Resolved]
  - Diarrhoea [Recovered/Resolved]
  - Drug ineffective [None]

NARRATIVE: CASE EVENT DATE: 202103
